FAERS Safety Report 8598839-4 (Version None)
Quarter: 2012Q3

REPORT INFORMATION
  Report Type: 
  Country: None (occurrence: None)
  Receive Date: 20120816
  Receipt Date: 20120730
  Transmission Date: 20120928
  Serious: Yes (Other)
  Sender: FDA-Public Use
  Company Number: PL-GLAXOSMITHKLINE-B0821023A

PATIENT
  Age: 77 Year
  Sex: Female

DRUGS (5)
  1. TRASTUZUMAB [Concomitant]
     Indication: BREAST CANCER
     Route: 065
     Dates: start: 20100401
  2. LAPATINIB [Suspect]
     Indication: BREAST CANCER
     Route: 048
     Dates: start: 20101001
  3. PACLITAXEL [Suspect]
     Indication: BREAST CANCER
     Route: 042
     Dates: start: 20100401
  4. CAPECITABINE [Suspect]
     Indication: BREAST CANCER
     Route: 065
     Dates: start: 20101001
  5. ACETYLSALICYLIC ACID SRT [Concomitant]
     Dosage: 75MG PER DAY
     Route: 065

REACTIONS (5)
  - RHINITIS [None]
  - PALMAR-PLANTAR ERYTHRODYSAESTHESIA SYNDROME [None]
  - CONJUNCTIVITIS [None]
  - DIARRHOEA [None]
  - OEDEMA [None]
